FAERS Safety Report 5764818-5 (Version None)
Quarter: 2008Q2

REPORT INFORMATION
  Report Type: 
  Country: None (occurrence: None)
  Receive Date: 20080609
  Receipt Date: 20080609
  Transmission Date: 20081010
  Serious: No
  Sender: FDA-Public Use
  Company Number: None

PATIENT
  Sex: Female
  Weight: 48.5349 kg

DRUGS (3)
  1. ISONIAZID [Suspect]
     Indication: TUBERCULOSIS
     Dosage: 300MG PO DAILY
     Route: 048
     Dates: start: 20080411, end: 20080519
  2. RIFAMPIN [Suspect]
     Dosage: 600MG PO DAILY
     Route: 048
  3. PYRAZINAMIDE [Suspect]
     Dosage: 750MG PO DAILY
     Route: 048

REACTIONS (1)
  - HEPATITIS [None]
